FAERS Safety Report 14947568 (Version 1)
Quarter: 2018Q2

REPORT INFORMATION
  Report Type: Spontaneous
  Country: DE (occurrence: DE)
  Receive Date: 20180529
  Receipt Date: 20180529
  Transmission Date: 20180711
  Serious: Yes (Other)
  Sender: FDA-Public Use
  Company Number: DE-ABBVIE-18K-062-2369318-00

PATIENT
  Sex: Male

DRUGS (1)
  1. DUODOPA [Suspect]
     Active Substance: CARBIDOPA\LEVODOPA
     Indication: PARKINSON^S DISEASE
     Dosage: 82 G PER DAY
     Route: 050

REACTIONS (10)
  - Hallucination [Unknown]
  - Incontinence [Unknown]
  - Hyperkinesia [Unknown]
  - Suicidal ideation [Unknown]
  - Dyskinesia [Unknown]
  - Device issue [Unknown]
  - Hypersexuality [Unknown]
  - Akinesia [Unknown]
  - Impulse-control disorder [Unknown]
  - Agitation [Unknown]
